FAERS Safety Report 17175305 (Version 1)
Quarter: 2019Q4

REPORT INFORMATION
  Report Type: Spontaneous
  Country: US (occurrence: US)
  Receive Date: 20191219
  Receipt Date: 20191219
  Transmission Date: 20200122
  Serious: No
  Sender: FDA-Public Use
  Company Number: US-UCBSA-114275

PATIENT
  Sex: Female
  Weight: 86.18 kg

DRUGS (1)
  1. CIMZIA [Suspect]
     Active Substance: CERTOLIZUMAB PEGOL
     Indication: RHEUMATOID ARTHRITIS
     Dosage: DOSE: NORAML FREQUENCY : 4 WEEKS;
     Route: 058
     Dates: start: 201306

REACTIONS (2)
  - Pain [Recovered/Resolved]
  - Unevaluable event [Not Recovered/Not Resolved]
